FAERS Safety Report 8793805 (Version 1)
Quarter: 2012Q4

REPORT INFORMATION
  Report Type: 
  Country: DE (occurrence: JP)
  Receive Date: 20120918
  Receipt Date: 20120918
  Transmission Date: 20130627
  Serious: Yes (Hospitalization)
  Sender: FDA-Public Use
  Company Number: JP-BRISTOL-MYERS SQUIBB COMPANY-16955833

PATIENT
  Age: 50 Year
  Sex: Male

DRUGS (2)
  1. METGLUCO [Suspect]
     Indication: DIABETES MELLITUS
     Route: 048
     Dates: end: 20120830
  2. AMARYL [Suspect]
     Route: 048
     Dates: end: 20120830

REACTIONS (4)
  - Oesophagitis [Recovered/Resolved]
  - Vomiting [Recovered/Resolved]
  - Blood ketone body increased [Recovered/Resolved]
  - Urine ketone body present [Recovered/Resolved]
